FAERS Safety Report 6150520-7 (Version None)
Quarter: 2009Q2

REPORT INFORMATION
  Report Type: 
  Country: None (occurrence: None)
  Receive Date: 20090409
  Receipt Date: 20090401
  Transmission Date: 20091009
  Serious: Yes (Hospitalization)
  Sender: FDA-Public Use
  Company Number: US-BAXTER-2009BH005225

PATIENT
  Age: 44 Year
  Sex: Male

DRUGS (14)
  1. DIANEAL [Suspect]
     Indication: PERITONEAL DIALYSIS
     Route: 033
     Dates: start: 20061101
  2. DIANEAL [Suspect]
     Indication: PERITONEAL DIALYSIS
     Route: 033
     Dates: start: 20061101
  3. DILAUDID [Suspect]
     Indication: PAIN IN EXTREMITY
     Route: 065
  4. HEPARIN [Concomitant]
     Indication: DRUG USE FOR UNKNOWN INDICATION
     Route: 065
  5. PRILOSEC [Concomitant]
     Indication: GASTROOESOPHAGEAL REFLUX DISEASE
     Route: 065
  6. REGLAN [Concomitant]
     Indication: NAUSEA
     Route: 065
  7. EPOGEN [Concomitant]
     Indication: ANAEMIA
     Route: 065
  8. NORVASC [Concomitant]
     Indication: BLOOD PRESSURE
     Route: 065
  9. INSULIN [Concomitant]
     Indication: DIABETES MELLITUS
     Route: 065
  10. GEMFIBROZILE [Concomitant]
     Indication: BLOOD CHOLESTEROL
     Route: 065
  11. ASPIRIN [Concomitant]
     Indication: DRUG USE FOR UNKNOWN INDICATION
     Route: 065
  12. COREG [Concomitant]
     Indication: BLOOD PRESSURE
     Route: 065
  13. ZETIA [Concomitant]
     Indication: BLOOD CHOLESTEROL
     Route: 065
  14. RENAGEL [Concomitant]
     Indication: ELECTROLYTE IMBALANCE
     Route: 065

REACTIONS (2)
  - HYPERGLYCAEMIA [None]
  - SOCIAL PROBLEM [None]
